FAERS Safety Report 16780327 (Version 2)
Quarter: 2019Q3

REPORT INFORMATION
  Report Type: Spontaneous
  Country: US (occurrence: US)
  Receive Date: 20190906
  Receipt Date: 20190911
  Transmission Date: 20191005
  Serious: Yes (Hospitalization, Other)
  Sender: FDA-Public Use
  Company Number: US-GLENMARK PHARMACEUTICALS-2019GMK043004

PATIENT
  Age: 10 Year
  Sex: Male

DRUGS (5)
  1. METHYLPHENIDATE. [Concomitant]
     Active Substance: METHYLPHENIDATE
     Indication: PRODUCT USED FOR UNKNOWN INDICATION
     Dosage: 30 MG, UNK
     Route: 065
  2. LAMOTRIGINE. [Concomitant]
     Active Substance: LAMOTRIGINE
     Indication: PRODUCT USED FOR UNKNOWN INDICATION
     Dosage: 100 MG, QD
     Route: 065
  3. CITALOPRAM [Concomitant]
     Active Substance: CITALOPRAM HYDROBROMIDE
     Indication: PRODUCT USED FOR UNKNOWN INDICATION
     Dosage: 10 MG, QD
     Route: 065
  4. ROPINIROLE. [Suspect]
     Active Substance: ROPINIROLE
     Indication: AFFECTIVE DISORDER
  5. ROPINIROLE. [Suspect]
     Active Substance: ROPINIROLE
     Indication: ATTENTION DEFICIT/HYPERACTIVITY DISORDER
     Dosage: 2.5 DF, OD
     Route: 065

REACTIONS (11)
  - Movement disorder [Recovering/Resolving]
  - Agitation [Recovering/Resolving]
  - Pruritus [Recovering/Resolving]
  - Product selection error [Unknown]
  - Thirst [Recovering/Resolving]
  - Increased appetite [Recovering/Resolving]
  - Wrong product administered [Unknown]
  - Product dispensing error [Unknown]
  - Irritability [Recovering/Resolving]
  - Hallucination, visual [Recovering/Resolving]
  - Urinary incontinence [Recovered/Resolved]
